FAERS Safety Report 9143333 (Version 1)
Quarter: 2013Q1

REPORT INFORMATION
  Report Type: Spontaneous
  Country: US (occurrence: US)
  Receive Date: 20130306
  Receipt Date: 20130306
  Transmission Date: 20140127
  Serious: No
  Sender: FDA-Public Use
  Company Number: US-ENDO PHARMACEUTICALS INC.-OPER20120714

PATIENT
  Sex: Female

DRUGS (1)
  1. OPANA ER [Suspect]
     Indication: PAIN
     Dosage: UNK
     Route: 048
     Dates: end: 2012

REACTIONS (2)
  - Nicotine dependence [Recovered/Resolved]
  - Nausea [Recovered/Resolved]
